FAERS Safety Report 10024052 (Version 1)
Quarter: 2014Q1

REPORT INFORMATION
  Report Type: Spontaneous
  Country: US (occurrence: None)
  Receive Date: 20140304
  Receipt Date: 20140304
  Transmission Date: 20141002
  Serious: Yes (Other)
  Sender: FDA-Public Use
  Company Number: RB-41336-2012

PATIENT
  Age: 23 Year
  Sex: Male

DRUGS (2)
  1. SUBOXONE 8 MG [Suspect]
     Indication: DRUG DEPENDENCE
     Dosage: SUBOXONE FILM; 2-3 FILMS/DAILY UNKNOWN
     Dates: start: 201110
  2. SUBUTEX 8 MG [Suspect]
     Indication: DRUG DEPENDENCE
     Dosage: 8 MG TID UNKNOWN
     Dates: start: 201203, end: 201208

REACTIONS (6)
  - Drug hypersensitivity [None]
  - Migraine [None]
  - Headache [None]
  - Pharyngeal oedema [None]
  - Lip swelling [None]
  - Constipation [None]
